FAERS Safety Report 26089244 (Version 1)
Quarter: 2025Q4

REPORT INFORMATION
  Report Type: Spontaneous
  Country: US (occurrence: US)
  Receive Date: 20251125
  Receipt Date: 20251125
  Transmission Date: 20260117
  Serious: No
  Sender: SANOFI AVENTIS
  Company Number: US-SA-2025SA351090

PATIENT
  Sex: Female
  Weight: 90 kg

DRUGS (7)
  1. DUPIXENT [Suspect]
     Active Substance: DUPILUMAB
     Indication: Dermatitis atopic
     Dosage: 300 MG, QOW
     Route: 058
  2. ALBUTEROL SULFATE [Concomitant]
     Active Substance: ALBUTEROL SULFATE
  3. TOPIRAMATE [Concomitant]
     Active Substance: TOPIRAMATE
  4. RIZATRIPTAN [Concomitant]
     Active Substance: RIZATRIPTAN
  5. IBUPROFEN [Concomitant]
     Active Substance: IBUPROFEN
  6. VITAMINS [Concomitant]
     Active Substance: VITAMINS
  7. AVEENO [Concomitant]
     Active Substance: DIMETHICONE\HOMOSALATE\OCTINOXATE\OCTISALATE\TITANIUM DIOXIDE

REACTIONS (2)
  - Pruritus [Unknown]
  - Dry skin [Unknown]
